FAERS Safety Report 20692015 (Version 2)
Quarter: 2022Q2

REPORT INFORMATION
  Report Type: Spontaneous
  Country: DE (occurrence: DE)
  Receive Date: 20220408
  Receipt Date: 20220420
  Transmission Date: 20220721
  Serious: Yes (Life-Threatening)
  Sender: FDA-Public Use
  Company Number: DE-PFIZER INC-202200420972

PATIENT
  Age: 45 Year
  Sex: Female
  Weight: 109 kg

DRUGS (2)
  1. TAXOL [Suspect]
     Active Substance: PACLITAXEL
     Indication: Breast cancer metastatic
     Dosage: 3 CYCLES
     Route: 042
     Dates: start: 202105, end: 202107
  2. BEVACIZUMAB [Suspect]
     Active Substance: BEVACIZUMAB
     Indication: Breast cancer metastatic
     Dosage: 3 CYCLES
     Route: 042
     Dates: start: 202105, end: 202107

REACTIONS (5)
  - Metastases to lymph nodes [Not Recovered/Not Resolved]
  - Metastases to bone [Not Recovered/Not Resolved]
  - Malignant neoplasm progression [Not Recovered/Not Resolved]
  - Metastases to liver [Not Recovered/Not Resolved]
  - Metastases to kidney [Not Recovered/Not Resolved]

NARRATIVE: CASE EVENT DATE: 20210701
